FAERS Safety Report 15105027 (Version 3)
Quarter: 2018Q3

REPORT INFORMATION
  Report Type: Spontaneous
  Country: RU (occurrence: RU)
  Receive Date: 20180703
  Receipt Date: 20180709
  Transmission Date: 20181010
  Serious: Yes (Hospitalization, Other)
  Sender: FDA-Public Use
  Company Number: RU-BIOGEN-2018BI00603060

PATIENT
  Sex: Female

DRUGS (1)
  1. TYSABRI [Suspect]
     Active Substance: NATALIZUMAB
     Indication: MULTIPLE SCLEROSIS
     Route: 065
     Dates: start: 20160804

REACTIONS (8)
  - Muscle tightness [Recovered/Resolved]
  - Body temperature increased [Recovered/Resolved]
  - Polymenorrhoea [Unknown]
  - Parosmia [Unknown]
  - Headache [Unknown]
  - Meningitis [Unknown]
  - Rhinitis [Recovered/Resolved]
  - Multiple sclerosis relapse [Unknown]

NARRATIVE: CASE EVENT DATE: 201710
